FAERS Safety Report 24719194 (Version 1)
Quarter: 2024Q4

REPORT INFORMATION
  Report Type: Spontaneous
  Country: US (occurrence: US)
  Receive Date: 20241210
  Receipt Date: 20241210
  Transmission Date: 20250114
  Serious: Yes (Hospitalization, Other)
  Sender: BIOLOGICAL E. LIMITED
  Company Number: US-BELUSA-2024BELLIT0116

PATIENT

DRUGS (2)
  1. DAPTOMYCIN [Suspect]
     Active Substance: DAPTOMYCIN
     Indication: Antibiotic therapy
     Route: 065
  2. KEYTRUDA [Suspect]
     Active Substance: PEMBROLIZUMAB
     Indication: Immunodeficiency
     Route: 065

REACTIONS (3)
  - Drug interaction [Unknown]
  - Pulmonary fibrosis [Recovered/Resolved]
  - Pneumonitis [Recovered/Resolved]
